FAERS Safety Report 9628638 (Version 2)
Quarter: 2013Q4

REPORT INFORMATION
  Report Type: Spontaneous
  Country: US (occurrence: US)
  Receive Date: 20131017
  Receipt Date: 20131211
  Transmission Date: 20140711
  Serious: No
  Sender: FDA-Public Use
  Company Number: US-PFIZER INC-2013293811

PATIENT
  Age: 48 Year
  Sex: Female
  Weight: 81.63 kg

DRUGS (1)
  1. ADVIL ALLERGY AND CONGESTION RELIEF [Suspect]
     Indication: HYPERSENSITIVITY
     Dosage: 200 MG, AS NEEDED
     Route: 048
     Dates: start: 20131011

REACTIONS (1)
  - Drug ineffective [Unknown]
